FAERS Safety Report 6617506-7 (Version None)
Quarter: 2010Q1

REPORT INFORMATION
  Report Type: 
  Country: None (occurrence: None)
  Receive Date: 20100308
  Receipt Date: 20100224
  Transmission Date: 20100710
  Serious: Yes (Life-Threatening, Hospitalization)
  Sender: FDA-Public Use
  Company Number: GB-EISAI INC.-E3810-03434-SPO-GB

PATIENT
  Age: 80 Year
  Sex: Male
  Weight: 80 kg

DRUGS (7)
  1. PARIET (RABEPRAZOLE) [Suspect]
     Dosage: UNKNOWN
  2. LANSOPRAZOLE [Suspect]
     Dosage: UNKNOWN
     Route: 065
     Dates: start: 20060725, end: 20060808
  3. LOSEC [Suspect]
     Route: 048
     Dates: start: 20060601
  4. LOSEC [Suspect]
     Route: 048
     Dates: start: 20020101, end: 20060501
  5. OMEPRAZOLE [Suspect]
     Dosage: UNKNOWN
     Route: 041
     Dates: start: 20050505, end: 20050527
  6. OMEPRAZOLE [Suspect]
     Dosage: UNKNOWN
     Route: 042
     Dates: start: 20050101, end: 20050501
  7. PANTOPRAZOLE SODIUM [Suspect]
     Dosage: UNKNOWN
     Route: 065

REACTIONS (4)
  - HYPOCALCAEMIA [None]
  - HYPOMAGNESAEMIA [None]
  - HYPOPARATHYROIDISM [None]
  - TETANY [None]
